FAERS Safety Report 10214648 (Version 2)
Quarter: 2014Q3

REPORT INFORMATION
  Report Type: Spontaneous
  Country: CH (occurrence: CH)
  Receive Date: 20140603
  Receipt Date: 20140801
  Transmission Date: 20150326
  Serious: Yes (Hospitalization)
  Sender: FDA-Public Use
  Company Number: CH-BRISTOL-MYERS SQUIBB COMPANY-20863601

PATIENT
  Age: 67 Year
  Sex: Male

DRUGS (14)
  1. PASPERTIN [Suspect]
     Active Substance: METOCLOPRAMIDE HYDROCHLORIDE
  2. BUPRENORPHINE HCL [Suspect]
     Active Substance: BUPRENORPHINE HYDROCHLORIDE
  3. FENTANYL CITRATE. [Concomitant]
     Active Substance: FENTANYL CITRATE
  4. AMIODAR [Concomitant]
     Active Substance: AMIODARONE
  5. AMITIZA [Concomitant]
     Active Substance: LUBIPROSTONE
  6. SORBIDILAT [Concomitant]
  7. TOREM [Concomitant]
     Active Substance: TORSEMIDE
  8. ONDANSETRON [Concomitant]
     Active Substance: ONDANSETRON
     Dosage: TOTAL DOSE: 12MG
  9. NOVALGIN [Concomitant]
     Active Substance: METAMIZOLE SODIUM
  10. ERBITUX [Suspect]
     Active Substance: CETUXIMAB
     Indication: HEAD AND NECK CANCER
     Dosage: 647.8 MG
     Dates: start: 20140327, end: 20140327
  11. CARVEDILOL. [Suspect]
     Active Substance: CARVEDILOL
     Dosage: TOTAL DOSE: 25 MG
  12. AMIODAR [Concomitant]
     Active Substance: AMIODARONE
  13. PANTOPRAZOLE [Concomitant]
     Active Substance: PANTOPRAZOLE SODIUM
  14. ASPIRIN. [Concomitant]
     Active Substance: ASPIRIN

REACTIONS (2)
  - Status epilepticus [Recovered/Resolved]
  - Meningitis aseptic [Not Recovered/Not Resolved]

NARRATIVE: CASE EVENT DATE: 20140327
